FAERS Safety Report 7111818-9 (Version None)
Quarter: 2010Q4

REPORT INFORMATION
  Report Type: 
  Country: None (occurrence: None)
  Receive Date: 20101119
  Receipt Date: 20101111
  Transmission Date: 20110411
  Serious: Yes (Other)
  Sender: FDA-Public Use
  Company Number: US-BIOGENIDEC-2010BI021305

PATIENT
  Sex: Female

DRUGS (3)
  1. AVONEX [Suspect]
     Indication: MULTIPLE SCLEROSIS
     Route: 030
     Dates: start: 20070614, end: 20100201
  2. REBIF [Concomitant]
     Indication: MULTIPLE SCLEROSIS
     Dates: start: 20050515, end: 20071115
  3. COPAXONE [Concomitant]
     Indication: MULTIPLE SCLEROSIS

REACTIONS (2)
  - ADVERSE EVENT [None]
  - RENAL FAILURE CHRONIC [None]
